FAERS Safety Report 19065894 (Version 2)
Quarter: 2021Q3

REPORT INFORMATION
  Report Type: Report from Study
  Country: CA (occurrence: CA)
  Receive Date: 20210327
  Receipt Date: 20210914
  Transmission Date: 20211014
  Serious: Yes (Other)
  Sender: FDA-Public Use
  Company Number: PHHY2018CA055367

PATIENT
  Age: 5 Year
  Sex: Male

DRUGS (23)
  1. ILARIS [Suspect]
     Active Substance: CANAKINUMAB
     Dosage: 30 MG, Q4W
     Route: 058
     Dates: start: 20180226
  2. ILARIS [Suspect]
     Active Substance: CANAKINUMAB
     Dosage: 30 OT, Q4W
     Route: 058
     Dates: start: 20190226
  3. ILARIS [Suspect]
     Active Substance: CANAKINUMAB
     Dosage: 30 OT, Q4W
     Route: 058
     Dates: start: 20191227
  4. ILARIS [Suspect]
     Active Substance: CANAKINUMAB
     Dosage: 30 OT, Q4W
     Route: 065
     Dates: start: 20190521
  5. ILARIS [Suspect]
     Active Substance: CANAKINUMAB
     Dosage: 30 OT, Q4W
     Route: 058
     Dates: start: 20190618
  6. ILARIS [Suspect]
     Active Substance: CANAKINUMAB
     Dosage: 25 OT, Q4W
     Route: 058
     Dates: start: 20180326
  7. ILARIS [Suspect]
     Active Substance: CANAKINUMAB
     Dosage: 25 OT, 4 WEEKS
     Route: 065
     Dates: start: 20180911
  8. ILARIS [Suspect]
     Active Substance: CANAKINUMAB
     Dosage: UNK
     Route: 065
     Dates: start: 20181204
  9. ILARIS [Suspect]
     Active Substance: CANAKINUMAB
     Dosage: 30 OT, Q4W
     Route: 058
     Dates: start: 20200417
  10. ILARIS [Suspect]
     Active Substance: CANAKINUMAB
     Dosage: 30 OT, Q4W
     Route: 058
     Dates: start: 20190712
  11. ILARIS [Suspect]
     Active Substance: CANAKINUMAB
     Dosage: 30 OT, Q4W
     Route: 058
     Dates: start: 20200124
  12. ILARIS [Suspect]
     Active Substance: CANAKINUMAB
     Indication: MEVALONATE KINASE DEFICIENCY
     Dosage: 40 OT, Q4W
     Route: 058
     Dates: start: 20180226
  13. ILARIS [Suspect]
     Active Substance: CANAKINUMAB
     Dosage: 30 MG, Q4W
     Route: 058
     Dates: start: 20200710
  14. ILARIS [Suspect]
     Active Substance: CANAKINUMAB
     Dosage: 25 OT, Q4W
     Route: 058
     Dates: start: 20181106
  15. ILARIS [Suspect]
     Active Substance: CANAKINUMAB
     Dosage: 30 OT, Q4W
     Route: 058
     Dates: start: 20200221
  16. ILARIS [Suspect]
     Active Substance: CANAKINUMAB
     Dosage: 30 OT, Q4W
     Route: 065
     Dates: start: 20190423
  17. ILARIS [Suspect]
     Active Substance: CANAKINUMAB
     Dosage: UNK
     Route: 065
  18. ILARIS [Suspect]
     Active Substance: CANAKINUMAB
     Dosage: 30 OT, Q4W
     Route: 058
     Dates: start: 20200320
  19. ILARIS [Suspect]
     Active Substance: CANAKINUMAB
     Dosage: UNK
     Route: 065
     Dates: start: 20180814
  20. ILARIS [Suspect]
     Active Substance: CANAKINUMAB
     Dosage: 25 UNK, Q4W
     Route: 058
     Dates: start: 20181009
  21. ILARIS [Suspect]
     Active Substance: CANAKINUMAB
     Dosage: 30 OT, Q4W
     Route: 058
     Dates: start: 20190103
  22. ILARIS [Suspect]
     Active Substance: CANAKINUMAB
     Dosage: 30 OT, Q4W
     Route: 065
     Dates: start: 20190326
  23. ILARIS [Suspect]
     Active Substance: CANAKINUMAB
     Dosage: UNK
     Route: 065

REACTIONS (16)
  - Abdominal pain [Not Recovered/Not Resolved]
  - Haematochezia [Unknown]
  - Condition aggravated [Unknown]
  - Heart rate increased [Recovering/Resolving]
  - Diarrhoea [Unknown]
  - Pyrexia [Unknown]
  - Anal rash [Unknown]
  - Pyrexia [Recovered/Resolved]
  - Mevalonate kinase deficiency [Unknown]
  - Blood pressure decreased [Unknown]
  - Headache [Unknown]
  - Fatigue [Unknown]
  - Incorrect dose administered [Unknown]
  - Pyrexia [Unknown]
  - Swelling face [Recovering/Resolving]
  - Sensitive skin [Unknown]

NARRATIVE: CASE EVENT DATE: 20200707
